FAERS Safety Report 19118013 (Version 1)
Quarter: 2021Q2

REPORT INFORMATION
  Report Type: Spontaneous
  Country: FR (occurrence: FR)
  Receive Date: 20210410
  Receipt Date: 20210410
  Transmission Date: 20210717
  Serious: Yes (Hospitalization)
  Sender: FDA-Public Use
  Company Number: NVSC2021FR076843

PATIENT
  Age: 71 Year
  Sex: Male
  Weight: 92 kg

DRUGS (5)
  1. ATORVASTATIN [Suspect]
     Active Substance: ATORVASTATIN
     Indication: MYOCARDIAL INFARCTION
     Dosage: 80 MG
     Route: 048
     Dates: start: 20210204, end: 20210226
  2. CORDARONE [Interacting]
     Active Substance: AMIODARONE HYDROCHLORIDE
     Indication: ATRIAL FIBRILLATION
     Dosage: 600 MG
     Route: 048
     Dates: start: 20210217, end: 20210226
  3. FLUCONAZOLE. [Interacting]
     Active Substance: FLUCONAZOLE
     Indication: OESOPHAGEAL CANDIDIASIS
     Dosage: 200 MG, QD
     Route: 048
     Dates: start: 20210218, end: 20210226
  4. DUOPLAVIN [Concomitant]
     Active Substance: ASPIRIN\CLOPIDOGREL
     Indication: MYOCARDIAL INFARCTION
     Dosage: UNK
     Route: 048
     Dates: start: 20210204
  5. ORBENINE [Concomitant]
     Active Substance: CLOXACILLIN SODIUM
     Indication: ENDOCARDITIS
     Dosage: UNK
     Route: 042
     Dates: start: 20210217

REACTIONS (1)
  - Rhabdomyolysis [Recovering/Resolving]

NARRATIVE: CASE EVENT DATE: 20210227
